FAERS Safety Report 23754685 (Version 1)
Quarter: 2024Q2

REPORT INFORMATION
  Report Type: Spontaneous
  Country: GB (occurrence: GB)
  Receive Date: 20240418
  Receipt Date: 20240418
  Transmission Date: 20240716
  Serious: Yes (Other)
  Sender: FDA-Public Use
  Company Number: None

PATIENT
  Age: 77 Year
  Sex: Female
  Weight: 43.5 kg

DRUGS (1)
  1. FEDRATINIB [Suspect]
     Active Substance: FEDRATINIB
     Indication: Myelofibrosis
     Route: 048
     Dates: start: 20240205, end: 20240308

REACTIONS (8)
  - Palmoplantar keratoderma [Not Recovered/Not Resolved]
  - Erythema [Not Recovered/Not Resolved]
  - Sensory loss [Not Recovered/Not Resolved]
  - Leukonychia [Not Recovered/Not Resolved]
  - Finger deformity [Not Recovered/Not Resolved]
  - Raynaud^s phenomenon [Unknown]
  - Skin exfoliation [Unknown]
  - Skin discolouration [Unknown]

NARRATIVE: CASE EVENT DATE: 20240228
